FAERS Safety Report 19066565 (Version 1)
Quarter: 2021Q1

REPORT INFORMATION
  Report Type: Spontaneous
  Country: US (occurrence: US)
  Receive Date: 20210328
  Receipt Date: 20210328
  Transmission Date: 20210420
  Serious: Yes (Hospitalization)
  Sender: FDA-Public Use
  Company Number: US-TEVA-2021-US-1893626

PATIENT
  Age: 39 Year
  Sex: Male

DRUGS (1)
  1. SILDENAFIL. [Suspect]
     Active Substance: SILDENAFIL
     Indication: DRUG ABUSE
     Route: 065

REACTIONS (2)
  - Substance use [Unknown]
  - Penile vein thrombosis [Recovered/Resolved]
